FAERS Safety Report 8245005-8 (Version None)
Quarter: 2012Q1

REPORT INFORMATION
  Report Type: 
  Country: None (occurrence: None)
  Receive Date: 20120329
  Receipt Date: 20120321
  Transmission Date: 20120608
  Serious: Yes (Other)
  Sender: FDA-Public Use
  Company Number: ES-ABBOTT-12P-144-0917488-00

PATIENT
  Sex: Male

DRUGS (7)
  1. HUMIRA [Suspect]
     Indication: PSORIASIS
     Route: 065
     Dates: start: 20091007, end: 20100325
  2. STELARA [Suspect]
     Indication: PSORIASIS
     Route: 058
     Dates: start: 20100427, end: 20100427
  3. STELARA [Suspect]
     Dates: start: 20110803, end: 20110803
  4. STELARA [Suspect]
     Dosage: 3 DOSES
     Dates: start: 20100729, end: 20100729
  5. STELARA [Suspect]
     Dates: end: 20111103
  6. STELARA [Suspect]
     Dosage: 2 DOSES
     Dates: start: 20101010, end: 20101010
  7. STELARA [Suspect]
     Dates: start: 20110921, end: 20110921

REACTIONS (3)
  - PSORIASIS [None]
  - LARYNGEAL CANCER [None]
  - DRUG INEFFECTIVE [None]
